FAERS Safety Report 14932268 (Version 8)
Quarter: 2022Q4

REPORT INFORMATION
  Report Type: Report from Study
  Country: US (occurrence: US)
  Receive Date: 20180524
  Receipt Date: 20221028
  Transmission Date: 20230113
  Serious: Yes (Hospitalization, Other)
  Sender: FDA-Public Use
  Company Number: US-ACADIA PHARMACEUTICALS INC.-ACA-2018-008044

PATIENT
  Sex: Female

DRUGS (8)
  1. NUPLAZID [Suspect]
     Active Substance: PIMAVANSERIN TARTRATE
     Indication: Hallucination
     Dosage: 34 MG, QD AT BEDTIME
     Route: 048
     Dates: start: 20190121
  2. NUPLAZID [Suspect]
     Active Substance: PIMAVANSERIN TARTRATE
     Indication: Delusion
  3. NUPLAZID [Suspect]
     Active Substance: PIMAVANSERIN TARTRATE
     Indication: Parkinson^s disease psychosis
  4. NUPLAZID [Suspect]
     Active Substance: PIMAVANSERIN TARTRATE
     Indication: Parkinson^s disease
  5. NUPLAZID [Suspect]
     Active Substance: PIMAVANSERIN TARTRATE
     Indication: Hallucination
     Dosage: 17 MG, QD
  6. NUPLAZID [Suspect]
     Active Substance: PIMAVANSERIN TARTRATE
     Indication: Delusion
     Dosage: 34 MG, QD
     Route: 048
  7. NUPLAZID [Suspect]
     Active Substance: PIMAVANSERIN TARTRATE
     Indication: Parkinson^s disease psychosis
     Dosage: 34 MG, QD
     Route: 048
  8. ROPINIROLE [Concomitant]
     Active Substance: ROPINIROLE
     Indication: Product used for unknown indication
     Dosage: 0.5 MG

REACTIONS (15)
  - Pneumonia [Unknown]
  - Back pain [Not Recovered/Not Resolved]
  - Flatulence [Not Recovered/Not Resolved]
  - Dyspepsia [Not Recovered/Not Resolved]
  - Pain in extremity [Unknown]
  - Pyrexia [Not Recovered/Not Resolved]
  - Restlessness [Recovered/Resolved]
  - Nightmare [Recovered/Resolved]
  - Underdose [Recovered/Resolved]
  - Product dose omission issue [Recovered/Resolved]
  - Hallucination, visual [Recovered/Resolved]
  - Somnolence [Unknown]
  - Fall [Unknown]
  - Hypersensitivity [Not Recovered/Not Resolved]
  - Hallucination, auditory [Not Recovered/Not Resolved]

NARRATIVE: CASE EVENT DATE: 20190101
